FAERS Safety Report 22159372 (Version 1)
Quarter: 2023Q1

REPORT INFORMATION
  Report Type: Spontaneous
  Country: BE (occurrence: BE)
  Receive Date: 20230331
  Receipt Date: 20230331
  Transmission Date: 20230417
  Serious: No
  Sender: FDA-Public Use
  Company Number: BE-ALKEM LABORATORIES LIMITED-BE-ALKEM-2023-02568

PATIENT
  Age: 23 Year
  Sex: Female

DRUGS (1)
  1. SIROLIMUS [Suspect]
     Active Substance: SIROLIMUS
     Indication: Malformation venous
     Dosage: UNK
     Route: 065

REACTIONS (3)
  - Aphthous ulcer [Unknown]
  - Toxicity to various agents [Unknown]
  - Drug intolerance [Unknown]
